FAERS Safety Report 10034082 (Version 1)
Quarter: 2014Q1

REPORT INFORMATION
  Report Type: Spontaneous
  Country: US (occurrence: None)
  Receive Date: 20140324
  Receipt Date: 20140324
  Transmission Date: 20141002
  Serious: Yes (Life-Threatening, Disabling, Other)
  Sender: FDA-Public Use
  Company Number: None

PATIENT
  Age: 84 Year
  Sex: Male
  Weight: 99.79 kg

DRUGS (2)
  1. CIPRO [Suspect]
     Indication: URINARY TRACT INFECTION
     Route: 048
     Dates: start: 20080311, end: 20100118
  2. LEVAQUIN [Suspect]

REACTIONS (5)
  - Myocardial infarction [None]
  - Atrial fibrillation [None]
  - Muscular weakness [None]
  - Pain [None]
  - Balance disorder [None]
